FAERS Safety Report 7343676-1 (Version None)
Quarter: 2011Q1

REPORT INFORMATION
  Report Type: 
  Country: None (occurrence: None)
  Receive Date: 20110310
  Receipt Date: 20100929
  Transmission Date: 20110831
  Serious: No
  Sender: FDA-Public Use
  Company Number: A0883994A

PATIENT
  Age: 48 Year
  Sex: Male

DRUGS (1)
  1. NICOTINE POLACRILEX [Suspect]

REACTIONS (2)
  - INTENTIONAL DRUG MISUSE [None]
  - DRUG ADMINISTRATION ERROR [None]
